FAERS Safety Report 6011560-1 (Version None)
Quarter: 2008Q4

REPORT INFORMATION
  Report Type: 
  Country: None (occurrence: None)
  Receive Date: 20081218
  Receipt Date: 20080910
  Transmission Date: 20090506
  Serious: No
  Sender: FDA-Public Use
  Company Number: US-ASTRAZENECA-2008UW18806

PATIENT
  Age: 77 Year
  Sex: Female
  Weight: 76.2 kg

DRUGS (2)
  1. CRESTOR [Suspect]
     Indication: BLOOD CHOLESTEROL INCREASED
     Route: 048
  2. DIAVAN [Concomitant]

REACTIONS (3)
  - ARTHROPATHY [None]
  - ASTHENIA [None]
  - PAIN [None]
